FAERS Safety Report 16920784 (Version 1)
Quarter: 2019Q4

REPORT INFORMATION
  Report Type: Spontaneous
  Country: US (occurrence: US)
  Receive Date: 20191015
  Receipt Date: 20191015
  Transmission Date: 20200122
  Serious: Yes (Other)
  Sender: FDA-Public Use
  Company Number: US-ELI_LILLY_AND_COMPANY-US201910004205

PATIENT
  Sex: Male

DRUGS (2)
  1. FORTEO [Suspect]
     Active Substance: TERIPARATIDE
     Indication: OSTEOPOROSIS
     Dosage: 20 UG, UNKNOWN
     Route: 058
     Dates: start: 20190927, end: 20190929
  2. FORTEO [Suspect]
     Active Substance: TERIPARATIDE
     Indication: ACUTE STRESS DISORDER

REACTIONS (2)
  - Deep vein thrombosis [Not Recovered/Not Resolved]
  - Thrombophlebitis superficial [Not Recovered/Not Resolved]

NARRATIVE: CASE EVENT DATE: 20190929
